FAERS Safety Report 7760642-2 (Version None)
Quarter: 2011Q3

REPORT INFORMATION
  Report Type: 
  Country: None (occurrence: None)
  Receive Date: 20110919
  Receipt Date: 20110914
  Transmission Date: 20111222
  Serious: Yes (Hospitalization, Other)
  Sender: FDA-Public Use
  Company Number: FR-PFIZER INC-2011206650

PATIENT
  Age: 39 Year
  Sex: Female

DRUGS (1)
  1. DOSTINEX [Suspect]
     Indication: PROLACTINOMA
     Dosage: UNK
     Route: 048
     Dates: start: 20090601, end: 20110501

REACTIONS (3)
  - ASTHENIA [None]
  - NEPHROPATHY [None]
  - RENAL FAILURE CHRONIC [None]
